FAERS Safety Report 7656410-2 (Version None)
Quarter: 2011Q3

REPORT INFORMATION
  Report Type: 
  Country: None (occurrence: None)
  Receive Date: 20110804
  Receipt Date: 20110726
  Transmission Date: 20111222
  Serious: Yes (Hospitalization)
  Sender: FDA-Public Use
  Company Number: JP-GLAXOSMITHKLINE-B0728783A

PATIENT
  Sex: Female

DRUGS (15)
  1. VITAMEDIN [Concomitant]
     Indication: VITAMIN SUPPLEMENTATION
     Dosage: 1IUAX PER DAY
     Route: 042
     Dates: start: 20100329, end: 20100331
  2. BUFFERIN [Concomitant]
     Indication: PYREXIA
     Route: 048
     Dates: start: 20100329, end: 20100331
  3. CLARITHROMYCIN [Suspect]
     Indication: UPPER RESPIRATORY TRACT INFLAMMATION
     Route: 048
     Dates: start: 20100329, end: 20100329
  4. ROHYPNOL [Suspect]
     Indication: PRODUCT USED FOR UNKNOWN INDICATION
     Route: 065
  5. ZOLOFT [Suspect]
     Indication: DEPRESSION
     Dosage: 50MG PER DAY
     Route: 048
     Dates: start: 20100310, end: 20100330
  6. CEFTAZIDIME SODIUM [Suspect]
     Indication: URINARY TRACT INFECTION
     Dosage: 4G PER DAY
     Route: 042
     Dates: start: 20100330, end: 20100331
  7. SEISHOKU [Concomitant]
     Dosage: 200MG PER DAY
     Route: 042
     Dates: start: 20100330, end: 20100331
  8. TEGRETOL [Suspect]
     Indication: HYPOMANIA
     Dosage: 300MG PER DAY
     Route: 048
     Dates: start: 20100315, end: 20100329
  9. SERRAPEPTASE [Suspect]
     Indication: UPPER RESPIRATORY TRACT INFLAMMATION
     Route: 048
     Dates: start: 20100329, end: 20100331
  10. BISACODYL [Suspect]
     Indication: PRODUCT USED FOR UNKNOWN INDICATION
     Route: 065
  11. CEFSPAN [Concomitant]
     Indication: URINARY TRACT INFECTION
     Route: 048
     Dates: start: 20100329, end: 20100330
  12. ACTIT [Concomitant]
     Indication: PYREXIA
     Dosage: 200MG PER DAY
     Route: 042
     Dates: start: 20100329, end: 20100331
  13. UNKNOWN [Concomitant]
     Indication: PYREXIA
     Dosage: 1IUAX PER DAY
     Route: 042
     Dates: start: 20100331, end: 20110331
  14. RISPERIDONE [Suspect]
     Indication: PRODUCT USED FOR UNKNOWN INDICATION
     Route: 065
  15. SENNOSIDE [Suspect]
     Indication: PRODUCT USED FOR UNKNOWN INDICATION
     Route: 065

REACTIONS (4)
  - HYPERTHERMIA [None]
  - WHITE BLOOD CELL COUNT DECREASED [None]
  - OCULOMUCOCUTANEOUS SYNDROME [None]
  - LIVER DISORDER [None]
